FAERS Safety Report 10064489 (Version 1)
Quarter: 2014Q2

REPORT INFORMATION
  Report Type: Spontaneous
  Country: ES (occurrence: None)
  Receive Date: 20140404
  Receipt Date: 20140404
  Transmission Date: 20141212
  Serious: Yes (Other)
  Sender: FDA-Public Use
  Company Number: 2014P1002748

PATIENT
  Age: 35 Year
  Sex: Male

DRUGS (2)
  1. AMOXICILLIN [Suspect]
     Dates: start: 201305
  2. PHENYTOIN [Suspect]
     Indication: CONVULSION
     Dates: end: 2002

REACTIONS (6)
  - Pyrexia [None]
  - Pruritus generalised [None]
  - Headache [None]
  - Nausea [None]
  - Vomiting [None]
  - Drug reaction with eosinophilia and systemic symptoms [None]
